FAERS Safety Report 6250552-4 (Version None)
Quarter: 2009Q2

REPORT INFORMATION
  Report Type: 
  Country: None (occurrence: None)
  Receive Date: 20090630
  Receipt Date: 20090618
  Transmission Date: 20091009
  Serious: Yes (Other)
  Sender: FDA-Public Use
  Company Number: US-PFIZER INC-2009229169

PATIENT
  Sex: Female

DRUGS (4)
  1. PROVERA [Suspect]
     Indication: HORMONE REPLACEMENT THERAPY
     Dosage: 2.5 MG, UNK
     Dates: start: 19970520, end: 20010906
  2. PREMARIN [Suspect]
     Indication: HORMONE REPLACEMENT THERAPY
     Dosage: UNK
     Dates: start: 19970520, end: 20010906
  3. PREMPRO [Suspect]
     Indication: HORMONE REPLACEMENT THERAPY
  4. ESTROGEN NOS [Suspect]
     Indication: HORMONE REPLACEMENT THERAPY

REACTIONS (4)
  - ATRIOVENTRICULAR BLOCK [None]
  - BREAST CANCER FEMALE [None]
  - MYOCARDIAL INFARCTION [None]
  - THROMBOSIS [None]
